FAERS Safety Report 9416409 (Version 1)
Quarter: 2013Q3

REPORT INFORMATION
  Report Type: Spontaneous
  Country: US (occurrence: US)
  Receive Date: 20130724
  Receipt Date: 20130724
  Transmission Date: 20140515
  Serious: No
  Sender: FDA-Public Use
  Company Number: US-PFIZER INC-2013213337

PATIENT
  Sex: Female

DRUGS (3)
  1. DIFLUCAN [Suspect]
     Indication: FUNGAL INFECTION
     Dosage: 150 MG, 1X/DAY
     Dates: start: 201212
  2. DIFLUCAN [Suspect]
     Dosage: UNK
     Dates: start: 2013
  3. XANAX [Concomitant]
     Dosage: UNK, AS NEEDED

REACTIONS (1)
  - Drug eruption [Unknown]
